FAERS Safety Report 8659776 (Version 3)
Quarter: 2012Q4

REPORT INFORMATION
  Report Type: 
  Country: US (occurrence: US)
  Receive Date: 20120711
  Receipt Date: 20121123
  Transmission Date: 20130627
  Serious: Yes (Other)
  Sender: FDA-Public Use
  Company Number: US-JNJFOC-20120518249

PATIENT
  Sex: Female

DRUGS (12)
  1. TOPAMAX [Suspect]
     Indication: MIGRAINE
     Route: 048
     Dates: start: 200512, end: 20051230
  2. IBUPROFEN [Suspect]
     Route: 065
  3. IBUPROFEN [Suspect]
     Indication: PRODUCT USED FOR UNKNOWN INDICATION
     Route: 065
  4. AMOXICILLIN [Suspect]
     Indication: INFECTION
     Route: 065
  5. ERRIN [Suspect]
     Indication: CONTRACEPTION
     Route: 048
  6. IMITREX [Suspect]
     Indication: MIGRAINE
     Route: 048
  7. ZOLOFT [Suspect]
     Indication: DEPRESSION
     Route: 048
  8. UNKNOWN MEDICATION [Suspect]
     Indication: MIGRAINE
     Route: 065
  9. CEPHALEXIN [Suspect]
     Indication: INFECTION
     Route: 065
  10. UNSPECIFIED INGREDIENT [Suspect]
     Indication: ANAESTHESIA
     Route: 065
  11. CAFFEINE [Suspect]
     Indication: MIGRAINE
     Route: 065
  12. MULTIVITAMINS [Concomitant]
     Route: 048

REACTIONS (4)
  - Emotional disorder [Unknown]
  - Exposure during pregnancy [Recovered/Resolved]
  - Pregnancy [None]
  - Otitis media [None]
